FAERS Safety Report 11057159 (Version 3)
Quarter: 2015Q3

REPORT INFORMATION
  Report Type: Spontaneous
  Country: US (occurrence: US)
  Receive Date: 20150422
  Receipt Date: 20150709
  Transmission Date: 20151125
  Serious: No
  Sender: FDA-Public Use
  Company Number: US-PFIZER INC-2015134234

PATIENT
  Age: 60 Year
  Sex: Female
  Weight: 96 kg

DRUGS (2)
  1. TRIAZOLAM. [Suspect]
     Active Substance: TRIAZOLAM
     Indication: INSOMNIA
     Dosage: 25 MG, 1X/DAY
     Route: 048
     Dates: end: 20150406
  2. TRIAZOLAM. [Suspect]
     Active Substance: TRIAZOLAM
     Dosage: 25 MG, AS NEEDED
     Dates: start: 20150406

REACTIONS (1)
  - Drug ineffective [Unknown]

NARRATIVE: CASE EVENT DATE: 201503
